FAERS Safety Report 11693361 (Version 2)
Quarter: 2016Q1

REPORT INFORMATION
  Report Type: Spontaneous
  Country: PE (occurrence: PE)
  Receive Date: 20151103
  Receipt Date: 20160216
  Transmission Date: 20160525
  Serious: Yes (Other)
  Sender: FDA-Public Use
  Company Number: PE-PFIZER INC-2015367738

PATIENT
  Age: 72 Year
  Sex: Female

DRUGS (1)
  1. CELEBREX [Suspect]
     Active Substance: CELECOXIB
     Indication: OSTEOARTHRITIS

REACTIONS (4)
  - Migraine [Not Recovered/Not Resolved]
  - Depression [Not Recovered/Not Resolved]
  - Benign breast neoplasm [Not Recovered/Not Resolved]
  - Pain [Not Recovered/Not Resolved]
